FAERS Safety Report 19475876 (Version 1)
Quarter: 2021Q2

REPORT INFORMATION
  Report Type: Spontaneous
  Country: RU (occurrence: RU)
  Receive Date: 20210630
  Receipt Date: 20210630
  Transmission Date: 20210717
  Serious: Yes (Death, Hospitalization)
  Sender: FDA-Public Use
  Company Number: RU-TERSERA THERAPEUTICS LLC-2021TRS003107

PATIENT

DRUGS (2)
  1. CASODEX [Suspect]
     Active Substance: BICALUTAMIDE
     Indication: OVARIAN SERTOLI-LEYDIG CELL TUMOUR
     Dosage: UNK
     Route: 048
     Dates: start: 200707
  2. ZOLADEX [Suspect]
     Active Substance: GOSERELIN ACETATE
     Indication: OVARIAN SERTOLI-LEYDIG CELL TUMOUR
     Dosage: 3.6MG UNKNOWN
     Route: 058
     Dates: start: 200707

REACTIONS (6)
  - Oedema peripheral [Unknown]
  - Off label use [Unknown]
  - Malignant neoplasm progression [Fatal]
  - Anuria [Unknown]
  - Oedema [Unknown]
  - Calyceal diverticulum [Unknown]
